FAERS Safety Report 9657760 (Version 1)
Quarter: 2013Q4

REPORT INFORMATION
  Report Type: Spontaneous
  Country: CA (occurrence: CA)
  Receive Date: 20131030
  Receipt Date: 20131030
  Transmission Date: 20140711
  Serious: Yes (Other)
  Sender: FDA-Public Use
  Company Number: CA-TEVA-441396USA

PATIENT
  Sex: Male

DRUGS (5)
  1. CLOPIDOGREL [Suspect]
     Route: 048
  2. ALPRAZOLAM [Suspect]
     Route: 048
  3. ATENOLOL [Concomitant]
  4. RAMIPRIL [Concomitant]
  5. EZETROL [Concomitant]

REACTIONS (4)
  - Hypersensitivity [Unknown]
  - Glossodynia [Unknown]
  - Swollen tongue [Unknown]
  - Oropharyngeal pain [Unknown]
